FAERS Safety Report 17711889 (Version 1)
Quarter: 2020Q2

REPORT INFORMATION
  Report Type: Spontaneous
  Country: US (occurrence: US)
  Receive Date: 20200426
  Receipt Date: 20200426
  Transmission Date: 20200714
  Serious: Yes (Disabling)
  Sender: FDA-Public Use
  Company Number: None

PATIENT
  Age: 41 Year
  Sex: Male
  Weight: 80.55 kg

DRUGS (4)
  1. OMEPRAZOLE DELAYED RELEASE TABLETS 20MG [Suspect]
     Active Substance: OMEPRAZOLE
     Indication: GASTROOESOPHAGEAL REFLUX DISEASE
     Route: 048
     Dates: start: 20200420, end: 20200425
  2. TERBINAFINE. [Concomitant]
     Active Substance: TERBINAFINE
  3. NAFTIFINE HYDROCHLORIDE GEL [Concomitant]
  4. AMOXICILLIN AND CLAVULANATE POTASSIUM [Concomitant]
     Active Substance: AMOXICILLIN\CLAVULANATE POTASSIUM

REACTIONS (4)
  - Lymphadenopathy [None]
  - Lupus-like syndrome [None]
  - Skin lesion [None]
  - Infection [None]

NARRATIVE: CASE EVENT DATE: 20200423
